FAERS Safety Report 6834503-7 (Version None)
Quarter: 2010Q3

REPORT INFORMATION
  Report Type: 
  Country: None (occurrence: None)
  Receive Date: 20100712
  Receipt Date: 20070419
  Transmission Date: 20110219
  Serious: No
  Sender: FDA-Public Use
  Company Number: US-PFIZER INC-2007032886

PATIENT
  Sex: Female
  Weight: 53.181 kg

DRUGS (9)
  1. CHANTIX [Suspect]
     Indication: SMOKING CESSATION THERAPY
     Route: 048
     Dates: start: 20070324
  2. XANAX [Concomitant]
  3. ASPIRINE [Concomitant]
  4. SPIRIVA [Concomitant]
  5. VERAPAMIL [Concomitant]
  6. ALBUTEROL [Concomitant]
  7. ADVAIR DISKUS 100/50 [Concomitant]
  8. SIMVASTATIN [Concomitant]
  9. CHOLESTEROL- AND TRIGLYCERIDE REDUCERS [Concomitant]
     Indication: BLOOD CHOLESTEROL

REACTIONS (3)
  - ABNORMAL DREAMS [None]
  - HEADACHE [None]
  - POOR QUALITY SLEEP [None]
